FAERS Safety Report 23423485 (Version 3)
Quarter: 2024Q1

REPORT INFORMATION
  Report Type: Spontaneous
  Country: AU (occurrence: AU)
  Receive Date: 20240119
  Receipt Date: 20240207
  Transmission Date: 20240410
  Serious: Yes (Other)
  Sender: FDA-Public Use
  Company Number: AU-PFIZER INC-202400010868

PATIENT
  Age: 32 Year
  Sex: Female
  Weight: 142 kg

DRUGS (4)
  1. METHOTREXATE SODIUM [Suspect]
     Active Substance: METHOTREXATE SODIUM
     Indication: Hidradenitis
     Dosage: UNK
  2. ADALIMUMAB [Suspect]
     Active Substance: ADALIMUMAB\ISOPROPYL ALCOHOL
     Indication: Hidradenitis
     Dosage: 40 MG
  3. ADALIMUMAB [Suspect]
     Active Substance: ADALIMUMAB\ISOPROPYL ALCOHOL
     Indication: Pyoderma gangrenosum
  4. MOMETASONE [Concomitant]
     Active Substance: MOMETASONE
     Indication: Pyoderma gangrenosum

REACTIONS (3)
  - Disease progression [Unknown]
  - Off label use [Unknown]
  - Drug ineffective [Unknown]
